FAERS Safety Report 4326436-5 (Version None)
Quarter: 2004Q1

REPORT INFORMATION
  Report Type: 
  Country: None (occurrence: None)
  Receive Date: 20040323
  Receipt Date: 20040212
  Transmission Date: 20041129
  Serious: Yes (Hospitalization)
  Sender: FDA-Public Use
  Company Number: M03-341-160

PATIENT
  Age: 75 Year
  Sex: Male
  Weight: 83 kg

DRUGS (10)
  1. VELCADE [Suspect]
     Indication: MULTIPLE MYELOMA
     Dosage: 1.3 MG/M2:INTRAVENOUS (NOT OTHERWISE SPECIFIED)
     Route: 042
     Dates: start: 20031111, end: 20031111
  2. ASPIRIN [Concomitant]
  3. AMLODIPINE [Concomitant]
  4. ATENOLOL [Concomitant]
  5. GABAPENTIN [Concomitant]
  6. GLYCERYL TRINITRATE [Concomitant]
  7. PLAVIX [Concomitant]
  8. PROCRIT (ERYTHROPOIETIN) [Concomitant]
  9. SIMVASTATIN [Concomitant]
  10. ZESTRIL [Concomitant]

REACTIONS (4)
  - ANAEMIA [None]
  - CARDIAC FAILURE CONGESTIVE [None]
  - MYOCARDIAL INFARCTION [None]
  - RENAL FAILURE [None]
